FAERS Safety Report 6680981-6 (Version None)
Quarter: 2010Q2

REPORT INFORMATION
  Report Type: 
  Country: None (occurrence: None)
  Receive Date: 20100414
  Receipt Date: 20100408
  Transmission Date: 20101027
  Serious: Yes (Hospitalization)
  Sender: FDA-Public Use
  Company Number: FR-ASTRAZENECA-2010SE10683

PATIENT
  Age: 32054 Day
  Sex: Male

DRUGS (4)
  1. NEXIUM [Suspect]
     Route: 048
     Dates: start: 20091108, end: 20091117
  2. MODOPAR [Suspect]
     Indication: PARKINSON'S DISEASE
     Route: 048
     Dates: start: 20091106, end: 20091116
  3. ALFUZOSIN HCL [Suspect]
     Route: 048
     Dates: start: 20090909, end: 20091112
  4. FORLAX [Concomitant]
     Route: 048

REACTIONS (2)
  - EOSINOPHILIA [None]
  - SKIN REACTION [None]
